FAERS Safety Report 5689042-6 (Version None)
Quarter: 2008Q1

REPORT INFORMATION
  Report Type: 
  Country: None (occurrence: None)
  Receive Date: 20080331
  Receipt Date: 20080319
  Transmission Date: 20080703
  Serious: Yes (Hospitalization)
  Sender: FDA-Public Use
  Company Number: B0503853A

PATIENT
  Age: 69 Year
  Sex: Female
  Weight: 87 kg

DRUGS (13)
  1. AVANDIA [Suspect]
     Dosage: 4MG TWICE PER DAY
     Route: 048
     Dates: start: 20070101, end: 20071001
  2. DIAMICRON [Concomitant]
     Dosage: 30MG TWICE PER DAY
     Route: 048
     Dates: end: 20071001
  3. GLUCOR [Concomitant]
     Dosage: 100MG THREE TIMES PER DAY
     Route: 048
     Dates: end: 20071001
  4. INEGY [Concomitant]
     Route: 048
  5. TRIATEC [Concomitant]
     Dosage: 10MG PER DAY
     Route: 048
  6. AMLOR [Concomitant]
     Dosage: 5MG PER DAY
     Route: 048
  7. ALDACTONE [Concomitant]
     Dosage: 25MG PER DAY
     Route: 048
  8. HYPERIUM [Concomitant]
     Dosage: 1MG PER DAY
     Route: 048
  9. KARDEGIC [Concomitant]
     Indication: ANXIETY
     Dosage: 300MG PER DAY
     Route: 048
  10. LEXOMIL [Concomitant]
     Indication: ANXIETY
     Route: 048
  11. SPASMINE [Concomitant]
     Indication: ANXIETY
     Route: 048
     Dates: end: 20071001
  12. ENDOTELON [Concomitant]
     Dosage: 150MG TWICE PER DAY
     Route: 048
  13. SERESTA [Concomitant]
     Indication: DRUG USE FOR UNKNOWN INDICATION
     Dosage: 50MG PER DAY
     Route: 048

REACTIONS (6)
  - AMYOTROPHIC LATERAL SCLEROSIS [None]
  - DYSARTHRIA [None]
  - DYSPHAGIA [None]
  - DYSPNOEA [None]
  - MUSCLE CONTRACTIONS INVOLUNTARY [None]
  - WEIGHT INCREASED [None]
